FAERS Safety Report 15566991 (Version 2)
Quarter: 2020Q2

REPORT INFORMATION
  Report Type: Spontaneous
  Country: SI (occurrence: SI)
  Receive Date: 20181030
  Receipt Date: 20200501
  Transmission Date: 20200713
  Serious: Yes (Other)
  Sender: FDA-Public Use
  Company Number: SI-BAYER-2018-196261

PATIENT
  Age: 59 Year
  Sex: Male

DRUGS (4)
  1. STIVARGA [Suspect]
     Active Substance: REGORAFENIB
     Indication: METASTASES TO BLADDER
  2. TIPIRACIL [Concomitant]
     Active Substance: TIPIRACIL
     Dosage: UNK
     Dates: start: 201806
  3. TRIFLURIDINE. [Concomitant]
     Active Substance: TRIFLURIDINE
     Dosage: UNK
     Dates: start: 201806
  4. STIVARGA [Suspect]
     Active Substance: REGORAFENIB
     Indication: ADENOCARCINOMA OF COLON
     Dosage: DAILY DOSE 160 MG 3 WEEKS/4 WEEKS
     Dates: start: 201705, end: 201804

REACTIONS (10)
  - Fatigue [Recovered/Resolved]
  - Hydronephrosis [None]
  - Nephrostomy [None]
  - Metastasis [None]
  - Restless legs syndrome [Recovered/Resolved]
  - Metastases to lung [None]
  - Oral discomfort [None]
  - Palmar-plantar erythrodysaesthesia syndrome [None]
  - Hypertension [None]
  - Mucosal inflammation [Recovered/Resolved]

NARRATIVE: CASE EVENT DATE: 201705
